FAERS Safety Report 6535656-0 (Version None)
Quarter: 2010Q1

REPORT INFORMATION
  Report Type: 
  Country: None (occurrence: None)
  Receive Date: 20100111
  Receipt Date: 20100111
  Transmission Date: 20100710
  Serious: Yes (Other)
  Sender: FDA-Public Use
  Company Number: None

PATIENT
  Age: 51 Year
  Sex: Male
  Weight: 77.1115 kg

DRUGS (1)
  1. ZICAM NO DRIP LIQUID NASAL GEL HOMEOPATHIC MATRIXX INITIATIVES, INC [Suspect]
     Indication: NASOPHARYNGITIS
     Dosage: 1 SWAB EVERY 4 HRS NASAL
     Route: 045
     Dates: start: 20090201, end: 20090206

REACTIONS (6)
  - AGEUSIA [None]
  - ANOSMIA [None]
  - BURNING SENSATION [None]
  - LACRIMATION INCREASED [None]
  - NASAL CONGESTION [None]
  - NASAL DISCOMFORT [None]
